FAERS Safety Report 21049616 (Version 1)
Quarter: 2022Q3

REPORT INFORMATION
  Report Type: Spontaneous
  Country: US (occurrence: None)
  Receive Date: 20220706
  Receipt Date: 20220706
  Transmission Date: 20221027
  Serious: Yes (Other)
  Sender: FDA-Public Use
  Company Number: None

PATIENT
  Age: 16 Year
  Sex: Male
  Weight: 70.4 kg

DRUGS (1)
  1. LEVOTHYROXINE [Suspect]
     Active Substance: LEVOTHYROXINE
     Indication: Autoimmune hypothyroidism
     Dates: start: 20180816, end: 20210311

REACTIONS (2)
  - Anti-transglutaminase antibody increased [None]
  - Product formulation issue [None]

NARRATIVE: CASE EVENT DATE: 20211203
